FAERS Safety Report 10232372 (Version 1)
Quarter: 2014Q2

REPORT INFORMATION
  Report Type: Spontaneous
  Country: US (occurrence: None)
  Receive Date: 20140610
  Receipt Date: 20140610
  Transmission Date: 20141212
  Serious: Yes (Disabling)
  Sender: FDA-Public Use
  Company Number: None

PATIENT
  Age: 73 Year
  Sex: Female
  Weight: 68.04 kg

DRUGS (4)
  1. CIPRO [Suspect]
     Indication: GASTROINTESTINAL INFECTION
     Dosage: RX# 10070005 (5/14/14)?500 MG?1 PILL IN ER + 6 PILLS (RX)?TWICE DAILY?BY MOUTH
     Route: 048
     Dates: start: 20140504, end: 20140507
  2. CIPRO [Suspect]
     Dosage: RX# 10070005 (5/14/14)?500 MG?1 PILL IN ER + 6 PILLS (RX)?TWICE DAILY?BY MOUTH
     Route: 048
     Dates: start: 20140504, end: 20140507
  3. DILANTIN [Concomitant]
  4. FOSAMAX [Concomitant]

REACTIONS (4)
  - Dizziness [None]
  - Balance disorder [None]
  - Drug level below therapeutic [None]
  - Drug interaction [None]
